FAERS Safety Report 17503183 (Version 2)
Quarter: 2020Q4

REPORT INFORMATION
  Report Type: Not Available
  Country: None (occurrence: None)
  Receive Date: 20200305
  Receipt Date: 20201217
  Transmission Date: 20210113
  Serious: Yes (Death, Life-Threatening, Hospitalization)
  Sender: FDA-Public Use
  Company Number: US-AKRON, INC.-2081310

PATIENT
  Age: 74 Year
  Sex: Female

DRUGS (1)
  1. LABETALOL HCL [Suspect]
     Active Substance: LABETALOL HYDROCHLORIDE

REACTIONS (4)
  - Hydrocephalus [Fatal]
  - Respiratory failure [Fatal]
  - Pulseless electrical activity [Fatal]
  - Pneumonia [Fatal]
